FAERS Safety Report 6453770-5 (Version None)
Quarter: 2009Q4

REPORT INFORMATION
  Report Type: 
  Country: None (occurrence: None)
  Receive Date: 20091123
  Receipt Date: 20091123
  Transmission Date: 20100525
  Serious: No
  Sender: FDA-Public Use
  Company Number: None

PATIENT
  Age: 34 Year
  Sex: Female
  Weight: 108.8633 kg

DRUGS (1)
  1. CYMBALTA [Suspect]
     Indication: FIBROMYALGIA
     Dosage: 20MG QD PO FALL OF 2008 TO CURRENT
     Route: 048

REACTIONS (10)
  - ABDOMINAL PAIN [None]
  - DIZZINESS [None]
  - DRUG WITHDRAWAL SYNDROME [None]
  - FATIGUE [None]
  - INTENTIONAL DRUG MISUSE [None]
  - IRRITABILITY [None]
  - NAUSEA [None]
  - PAIN [None]
  - PARAESTHESIA [None]
  - RESTLESSNESS [None]
